FAERS Safety Report 8823689 (Version 1)
Quarter: 2012Q4

REPORT INFORMATION
  Report Type: 
  Country: CL (occurrence: CL)
  Receive Date: 20121003
  Receipt Date: 20121003
  Transmission Date: 20130627
  Serious: Yes (Death)
  Sender: FDA-Public Use
  Company Number: CL-PFIZER INC-2012241545

PATIENT
  Age: 68 Year
  Sex: Male

DRUGS (1)
  1. ANIDULAFUNGIN [Suspect]

REACTIONS (3)
  - Death [Fatal]
  - Rash generalised [Unknown]
  - Eosinophilia [Unknown]
